FAERS Safety Report 8512524 (Version 4)
Quarter: 2014Q1

REPORT INFORMATION
  Report Type: Spontaneous
  Country: US (occurrence: US)
  Receive Date: 20120413
  Receipt Date: 20140306
  Transmission Date: 20141002
  Serious: Yes (Hospitalization, Disabling, Other)
  Sender: FDA-Public Use
  Company Number: US-ASTRAZENECA-2012SE14154

PATIENT
  Age: 69 Year
  Sex: Female
  Weight: 68 kg

DRUGS (8)
  1. CRESTOR [Suspect]
     Route: 048
  2. NEXIUM [Suspect]
     Indication: GASTROOESOPHAGEAL REFLUX DISEASE
     Route: 048
  3. PRILOSEC [Suspect]
     Route: 048
  4. UNSPECIFIED INGREDIENTS [Interacting]
     Route: 065
  5. WATER PILL [Concomitant]
  6. LANTUS [Concomitant]
     Indication: DIABETES MELLITUS
  7. HUMALOG [Concomitant]
     Indication: DIABETES MELLITUS
  8. SYNTHROID [Concomitant]
     Dosage: GENERIC

REACTIONS (10)
  - Drug interaction [Unknown]
  - Liver disorder [Unknown]
  - Rhabdomyolysis [Unknown]
  - Paralysis [Unknown]
  - Nasopharyngitis [Unknown]
  - Pneumonia [Unknown]
  - Bronchitis [Unknown]
  - Sinusitis [Unknown]
  - Hearing impaired [Unknown]
  - Diabetes mellitus [Unknown]
